FAERS Safety Report 4345959-6 (Version None)
Quarter: 2004Q2

REPORT INFORMATION
  Report Type: 
  Country: None (occurrence: None)
  Receive Date: 20040420
  Receipt Date: 20040405
  Transmission Date: 20050107
  Serious: Yes (Death, Hospitalization)
  Sender: FDA-Public Use
  Company Number: 2002-DE-03515DE

PATIENT
  Age: 67 Year
  Sex: Male

DRUGS (4)
  1. SPIRIVA [Suspect]
     Indication: CHRONIC OBSTRUCTIVE AIRWAYS DISEASE
     Dosage: 18 MCG (19 MCG, 1 IN 1 D) IH
     Route: 055
     Dates: start: 20020920
  2. SALBUTAMOL DA (SALBUTAMOL) (AEM) [Concomitant]
  3. ISOPTIN (VERAPAMIL HYDROCHLORIDE) (TA) [Concomitant]
  4. ASS 100(ACETYLSALICYLIC ACID) (TA) [Concomitant]

REACTIONS (8)
  - C-REACTIVE PROTEIN INCREASED [None]
  - CHRONIC OBSTRUCTIVE AIRWAYS DISEASE EXACERBATED [None]
  - ECZEMA [None]
  - HEPATIC NEOPLASM [None]
  - OEDEMA PERIPHERAL [None]
  - PSORIASIS [None]
  - RENAL FAILURE CHRONIC [None]
  - SKIN DESQUAMATION [None]
